FAERS Safety Report 5425651-7 (Version None)
Quarter: 2007Q3

REPORT INFORMATION
  Report Type: 
  Country: None (occurrence: None)
  Receive Date: 20070824
  Receipt Date: 20070814
  Transmission Date: 20080115
  Serious: Yes (Hospitalization)
  Sender: FDA-Public Use
  Company Number: DE-PFIZER INC-2007067976

PATIENT
  Sex: Female
  Weight: 77.2 kg

DRUGS (11)
  1. SU-011,248 [Suspect]
     Indication: ADRENOCORTICAL CARCINOMA
     Route: 048
  2. LYSODREN [Concomitant]
  3. HYDROCORTISONE [Concomitant]
  4. MOXONIDINE [Concomitant]
  5. ALDACTONE [Concomitant]
  6. RAMIPRIL [Concomitant]
  7. PANTOPRAZOLE SODIUM [Concomitant]
  8. POTASSIUM CHLORIDE [Concomitant]
  9. VERGENTAN [Concomitant]
  10. LOPERAMIDE HCL [Concomitant]
  11. CONCOR [Concomitant]

REACTIONS (3)
  - FALL [None]
  - JOINT INJURY [None]
  - SYNCOPE [None]
